FAERS Safety Report 20604735 (Version 1)
Quarter: 2022Q1

REPORT INFORMATION
  Report Type: Spontaneous
  Country: CA (occurrence: CA)
  Receive Date: 20220317
  Receipt Date: 20220317
  Transmission Date: 20220423
  Serious: Yes (Other)
  Sender: FDA-Public Use
  Company Number: CA-SAMSUNG BIOEPIS-SB-2022-06001

PATIENT
  Age: 60 Year
  Sex: Female

DRUGS (16)
  1. ETANERCEPT [Suspect]
     Active Substance: ETANERCEPT
     Indication: Product used for unknown indication
     Dosage: UNKNOWN
     Route: 065
  2. ETANERCEPT [Suspect]
     Active Substance: ETANERCEPT
     Dosage: UNKNOWN
     Route: 065
     Dates: start: 202105, end: 202110
  3. XELJANZ [Suspect]
     Active Substance: TOFACITINIB CITRATE
     Indication: Rheumatoid arthritis
     Route: 048
     Dates: start: 20190815, end: 2021
  4. ARAVA [Suspect]
     Active Substance: LEFLUNOMIDE
     Indication: Product used for unknown indication
     Dosage: UNKNOWN
     Route: 065
     Dates: end: 202110
  5. COD LIVER OIL [Concomitant]
     Active Substance: COD LIVER OIL
     Indication: Product used for unknown indication
     Dosage: UNKNOWN
     Route: 065
     Dates: start: 2019
  6. GABAPENTIN [Concomitant]
     Active Substance: GABAPENTIN
     Indication: Product used for unknown indication
     Dosage: UNKNOWN
     Route: 065
  7. JARDIANCE [Concomitant]
     Active Substance: EMPAGLIFLOZIN
     Indication: Product used for unknown indication
     Dosage: UNKNOWN
     Route: 065
  8. LORAZEPAM [Concomitant]
     Active Substance: LORAZEPAM
     Indication: Anxiety
     Dosage: UNKNOWN
     Route: 065
  9. LEFLUNOMIDE [Concomitant]
     Active Substance: LEFLUNOMIDE
     Indication: Product used for unknown indication
     Dosage: UNKNOWN
     Route: 065
     Dates: start: 201605
  10. ACETAMINOPHEN\CAFFEINE\CODEINE [Concomitant]
     Active Substance: ACETAMINOPHEN\CAFFEINE\CODEINE
     Indication: Product used for unknown indication
     Dosage: UNKNOWN
     Route: 065
  11. METFORMIN [Concomitant]
     Active Substance: METFORMIN HYDROCHLORIDE
     Indication: Product used for unknown indication
     Dosage: UNKNOWN
     Route: 065
  12. PANTOPRAZOLE [Concomitant]
     Active Substance: PANTOPRAZOLE
     Indication: Product used for unknown indication
     Dosage: UNKNOWN
     Route: 065
  13. SYSTANE (HYPROMELLOSE 2910 (4000 MPA.S)) [Concomitant]
     Active Substance: HYPROMELLOSE 2910 (4000 MPA.S)
     Indication: Product used for unknown indication
     Dosage: UNKNOWN
     Route: 065
  14. SYSTANE (HYPROMELLOSE 2910 (4000 MPA.S)) [Concomitant]
     Active Substance: HYPROMELLOSE 2910 (4000 MPA.S)
     Dosage: UNKNOWN
     Route: 065
  15. VITAMIN D NOS [Concomitant]
     Active Substance: VITAMIN D NOS
     Indication: Diarrhoea
     Dosage: UNKNOWN
     Route: 065
  16. ENBREL [Concomitant]
     Active Substance: ETANERCEPT
     Indication: Product used for unknown indication
     Route: 058
     Dates: start: 2010, end: 2019

REACTIONS (18)
  - Cholelithiasis [Unknown]
  - Neuropathy peripheral [Unknown]
  - Weight decreased [Not Recovered/Not Resolved]
  - Gastrointestinal disorder [Not Recovered/Not Resolved]
  - Osteoarthritis [Unknown]
  - Drug ineffective [Unknown]
  - Alanine aminotransferase increased [Recovering/Resolving]
  - Illness [Unknown]
  - Alopecia [Unknown]
  - Chondrocalcinosis [Unknown]
  - Hepatic steatosis [Unknown]
  - Tender joint count increased [Unknown]
  - Effusion [Unknown]
  - Pain [Unknown]
  - Bursitis [Unknown]
  - Poor quality sleep [Unknown]
  - Fatigue [Unknown]
  - Fibromyalgia [Unknown]

NARRATIVE: CASE EVENT DATE: 20190901
